FAERS Safety Report 23226387 (Version 2)
Quarter: 2024Q2

REPORT INFORMATION
  Report Type: Report from Study
  Country: AU (occurrence: AU)
  Receive Date: 20231124
  Receipt Date: 20240416
  Transmission Date: 20240716
  Serious: Yes (Hospitalization, Other)
  Sender: FDA-Public Use
  Company Number: AU-ALXN-A202309516

PATIENT
  Age: 69 Year
  Sex: Male
  Weight: 75 kg

DRUGS (19)
  1. SOLIRIS [Suspect]
     Active Substance: ECULIZUMAB
     Indication: Atypical haemolytic uraemic syndrome
     Dosage: 900 MG, UNK
     Route: 042
     Dates: start: 20170530, end: 20170620
  2. SOLIRIS [Suspect]
     Active Substance: ECULIZUMAB
     Dosage: 1200 MG, UNK
     Route: 042
     Dates: start: 20170627
  3. CHOLECALCIFEROL [Concomitant]
     Active Substance: CHOLECALCIFEROL
     Indication: Vitamin supplementation
     Dosage: 25 MICROGRAM, QD
     Route: 048
     Dates: start: 20170520
  4. TACROLIMUS [Concomitant]
     Active Substance: TACROLIMUS
     Indication: Immunosuppressant drug therapy
     Dosage: UNK MG, BID
     Route: 048
     Dates: start: 20170524
  5. NICOTINAMIDE [Concomitant]
     Active Substance: NIACINAMIDE
     Indication: Neoplasm prophylaxis
     Dosage: 500 MILLIGRAM, BID
     Route: 048
     Dates: start: 20170714
  6. MAGNESIUM ASPARTATE [Concomitant]
     Active Substance: MAGNESIUM ASPARTATE
     Indication: Mineral supplementation
     Dosage: 1 GRAM, BID
     Route: 048
     Dates: start: 20220916
  7. MAGNESIUM ASPARTATE [Concomitant]
     Active Substance: MAGNESIUM ASPARTATE
     Dosage: 1500 MG, QD
     Route: 048
     Dates: start: 2022, end: 20230413
  8. NIZATIDINE [Concomitant]
     Active Substance: NIZATIDINE
     Indication: Gastrooesophageal reflux disease
     Dosage: 150 MG, QD
     Route: 048
     Dates: start: 20221124
  9. PREDNISOLONE [Concomitant]
     Active Substance: PREDNISOLONE
     Indication: Immunosuppressant drug therapy
     Dosage: 5 MILLIGRAM, QD
     Route: 048
     Dates: start: 2017
  10. ASPIRIN [Concomitant]
     Active Substance: ASPIRIN
     Indication: Anticoagulant therapy
     Dosage: 100 MG, QD
     Route: 048
     Dates: start: 201705
  11. SODIUM BICARBONATE [Concomitant]
     Active Substance: SODIUM BICARBONATE
     Indication: Acidosis
     Dosage: 1680 MG, QOD
     Route: 048
     Dates: start: 2020
  12. EVEROLIMUS [Concomitant]
     Active Substance: EVEROLIMUS
     Indication: Immunosuppressant drug therapy
     Dosage: UNK MILLIGRAM, BID
     Route: 048
     Dates: start: 202003
  13. NEOTIGASON [Concomitant]
     Active Substance: ACITRETIN
     Indication: Psoriasis
     Dosage: UNK MILLIGRAM, QOD
     Route: 048
     Dates: start: 2022
  14. SPIRONOLACTONE [Concomitant]
     Active Substance: SPIRONOLACTONE
     Indication: Hypervolaemia
     Dosage: 25 MILLIGRAM, QD
     Route: 048
     Dates: start: 2022
  15. EVOLOCUMAB [Concomitant]
     Active Substance: EVOLOCUMAB
     Indication: Hyperlipidaemia
     Dosage: 140 MILLIGRAM, Q2W
     Route: 058
     Dates: start: 202201
  16. APIXABAN [Concomitant]
     Active Substance: APIXABAN
     Indication: Anticoagulant therapy
     Dosage: 5 MILLIGRAM, BID
     Route: 048
     Dates: start: 202209
  17. MAGNESIUM FORTE [Concomitant]
     Indication: Mineral supplementation
     Dosage: 400 MILLIGRAM, QD
     Route: 048
     Dates: start: 202304
  18. FUROSEMIDE [Concomitant]
     Active Substance: FUROSEMIDE
     Indication: Hypervolaemia
     Dosage: UNK MILLIGRAM, QD
     Route: 048
     Dates: start: 20200605
  19. FUROSEMIDE [Concomitant]
     Active Substance: FUROSEMIDE
     Dosage: UNK MG, UNK
     Route: 042
     Dates: start: 20230411, end: 20230413

REACTIONS (2)
  - Pneumonia aspiration [Recovered/Resolved]
  - Cardiac failure [Recovered/Resolved]

NARRATIVE: CASE EVENT DATE: 20230411
